FAERS Safety Report 21903721 (Version 1)
Quarter: 2023Q1

REPORT INFORMATION
  Report Type: 
  Country: None (occurrence: None)
  Receive Date: 20230124
  Receipt Date: 20230124
  Transmission Date: 20230418
  Serious: No
  Sender: FDA-Public Use
  Company Number: None

PATIENT

DRUGS (1)
  1. LACTULOSE [Suspect]
     Active Substance: LACTULOSE

REACTIONS (6)
  - Oesophageal pain [Unknown]
  - Oesophagitis [Unknown]
  - Cough [Unknown]
  - Throat irritation [Unknown]
  - Throat irritation [Unknown]
  - Gastrointestinal tract irritation [Unknown]
